FAERS Safety Report 10075378 (Version 2)
Quarter: 2014Q2

REPORT INFORMATION
  Report Type: Spontaneous
  Country: NL (occurrence: NL)
  Receive Date: 20140414
  Receipt Date: 20140414
  Transmission Date: 20141212
  Serious: Yes (Other)
  Sender: FDA-Public Use
  Company Number: NL-RANBAXY-2014US-80241

PATIENT
  Age: 47 Year
  Sex: Male

DRUGS (1)
  1. PANTOPRAZOLE [Suspect]
     Indication: DIAPHRAGMATIC HERNIA
     Dosage: 40 MG, QD
     Route: 048

REACTIONS (2)
  - Vitamin B12 deficiency [Recovering/Resolving]
  - Myalgia [Recovering/Resolving]
